FAERS Safety Report 4966031-8 (Version None)
Quarter: 2006Q2

REPORT INFORMATION
  Report Type: 
  Country: None (occurrence: None)
  Receive Date: 20060407
  Receipt Date: 20060330
  Transmission Date: 20061013
  Serious: Yes (Hospitalization)
  Sender: FDA-Public Use
  Company Number: DK-GLAXOSMITHKLINE-B0418885A

PATIENT
  Age: 54 Year
  Sex: Male
  Weight: 112 kg

DRUGS (3)
  1. ROSIGLITAZONE [Suspect]
     Route: 048
     Dates: start: 20020407
  2. SULPHONYLUREA [Concomitant]
     Route: 048
  3. CORODIL [Concomitant]
     Indication: HYPERTENSION
     Dosage: 5MG PER DAY
     Route: 048
     Dates: start: 20011102

REACTIONS (2)
  - ACUTE MYOCARDIAL INFARCTION [None]
  - CHEST PAIN [None]
